FAERS Safety Report 5664691-X (Version None)
Quarter: 2008Q1

REPORT INFORMATION
  Report Type: 
  Country: None (occurrence: None)
  Receive Date: 20080312
  Receipt Date: 20080222
  Transmission Date: 20080703
  Serious: Yes (Other)
  Sender: FDA-Public Use
  Company Number: US022798

PATIENT
  Age: 82 Year
  Sex: Female
  Weight: 89.8122 kg

DRUGS (7)
  1. PROVIGIL [Suspect]
     Indication: FATIGUE
     Dosage: 200 MG QD ORAL
     Route: 048
     Dates: start: 20070101, end: 20080212
  2. ATENOLOL [Concomitant]
  3. GLIPIZIDE [Concomitant]
  4. ASPIRIN [Concomitant]
  5. FUROSEMIDE [Concomitant]
  6. CYMBALTA [Concomitant]
  7. ALTACE [Concomitant]

REACTIONS (8)
  - DRUG INEFFECTIVE [None]
  - DYSPHAGIA [None]
  - EYE SWELLING [None]
  - GLOSSODYNIA [None]
  - PRURITUS [None]
  - RASH [None]
  - SKIN EXFOLIATION [None]
  - STOMATITIS [None]
